FAERS Safety Report 25531107 (Version 2)
Quarter: 2025Q3

REPORT INFORMATION
  Report Type: Report from Study
  Country: US (occurrence: US)
  Receive Date: 20250708
  Receipt Date: 20250929
  Transmission Date: 20251021
  Serious: No
  Sender: ABBVIE
  Company Number: US-ABBVIE-6357343

PATIENT
  Age: 72 Year
  Sex: Male

DRUGS (2)
  1. SKYRIZI [Suspect]
     Active Substance: RISANKIZUMAB-RZAA
     Indication: Crohn^s disease
     Route: 058
     Dates: start: 20241216
  2. SKYRIZI [Suspect]
     Active Substance: RISANKIZUMAB-RZAA
     Route: 058

REACTIONS (2)
  - Solar lentigo [Not Recovered/Not Resolved]
  - Grip strength decreased [Not Recovered/Not Resolved]

NARRATIVE: CASE EVENT DATE: 20250101
